FAERS Safety Report 5368930-4 (Version None)
Quarter: 2007Q2

REPORT INFORMATION
  Report Type: 
  Country: None (occurrence: None)
  Receive Date: 20070625
  Receipt Date: 20061201
  Transmission Date: 20071010
  Serious: No
  Sender: FDA-Public Use
  Company Number: US-ASTRAZENECA-2006UW26910

PATIENT
  Age: 61 Year
  Sex: Male
  Weight: 89.8 kg

DRUGS (2)
  1. CRESTOR [Suspect]
     Route: 048
     Dates: start: 20061117
  2. PROTONIX [Concomitant]
     Dates: start: 20061001

REACTIONS (3)
  - ABDOMINAL PAIN LOWER [None]
  - FLATULENCE [None]
  - FREQUENT BOWEL MOVEMENTS [None]
